FAERS Safety Report 6237728-7 (Version None)
Quarter: 2009Q2

REPORT INFORMATION
  Report Type: 
  Country: None (occurrence: None)
  Receive Date: 20090617
  Receipt Date: 20090611
  Transmission Date: 20091009
  Serious: Yes (Other)
  Sender: FDA-Public Use
  Company Number: 2009JP000978

PATIENT
  Age: 63 Year
  Sex: Male

DRUGS (3)
  1. FUNGUARD (MICAFUNGIN) INJECTION [Suspect]
     Dosage: IV DRIP
     Route: 041
  2. TARGOCID [Suspect]
     Dosage: IV DRIP
     Route: 041
  3. ROPION (FLURBIPROFEN AXETIL) [Concomitant]

REACTIONS (1)
  - DISSEMINATED INTRAVASCULAR COAGULATION [None]
